FAERS Safety Report 23989510 (Version 1)
Quarter: 2024Q2

REPORT INFORMATION
  Report Type: Spontaneous
  Country: US (occurrence: US)
  Receive Date: 20240619
  Receipt Date: 20240619
  Transmission Date: 20240715
  Serious: No
  Sender: FDA-Public Use
  Company Number: US-Calliditas-2024CAL01086

PATIENT
  Age: 74 Year
  Sex: Female
  Weight: 65.2 kg

DRUGS (1)
  1. TARPEYO [Suspect]
     Active Substance: BUDESONIDE
     Indication: Renal disorder
     Route: 048
     Dates: start: 20240419

REACTIONS (11)
  - Biopsy bone marrow [Unknown]
  - Fatigue [Unknown]
  - Visual impairment [Unknown]
  - Diplopia [Unknown]
  - Increased tendency to bruise [Unknown]
  - Insomnia [Unknown]
  - Anxiety [Unknown]
  - Blood glucose increased [Unknown]
  - Dehydration [Unknown]
  - Off label use [Unknown]
  - Ocular discomfort [Unknown]
